FAERS Safety Report 9639965 (Version 1)
Quarter: 2013Q4

REPORT INFORMATION
  Report Type: Spontaneous
  Country: MX (occurrence: MX)
  Receive Date: 20131023
  Receipt Date: 20131023
  Transmission Date: 20140711
  Serious: Yes (Other)
  Sender: FDA-Public Use
  Company Number: MX-PFIZER INC-2013303331

PATIENT
  Age: 37 Year
  Sex: Female
  Weight: 75 kg

DRUGS (2)
  1. CHAMPIX [Suspect]
     Indication: SMOKING CESSATION THERAPY
     Dosage: UNK
     Route: 048
     Dates: start: 20130712, end: 2013
  2. BEDOYECTA [Concomitant]
     Indication: HYPOVITAMINOSIS
     Dosage: 1 DF, WEEKLY
     Dates: start: 20130712, end: 20130719

REACTIONS (2)
  - Gastritis [Recovered/Resolved]
  - Colitis [Recovered/Resolved]
